FAERS Safety Report 11457569 (Version 1)
Quarter: 2015Q3

REPORT INFORMATION
  Report Type: Spontaneous
  Country: US (occurrence: None)
  Receive Date: 20150902
  Receipt Date: 20150902
  Transmission Date: 20151125
  Serious: Yes (Hospitalization)
  Sender: FDA-Public Use
  Company Number: 2015PT000102

PATIENT
  Age: 67 Year
  Sex: Female

DRUGS (3)
  1. IMBRUVICA [Suspect]
     Active Substance: IBRUTINIB
     Indication: LUNG NEOPLASM MALIGNANT
     Route: 048
     Dates: start: 20140809
  2. ZOHYDRO [Suspect]
     Active Substance: HYDROCODONE BITARTRATE
  3. SUBSYS (FENTANYL) [Concomitant]

REACTIONS (4)
  - Diarrhoea [None]
  - Abdominal discomfort [None]
  - Vomiting [None]
  - Hypersensitivity [None]
